FAERS Safety Report 13803400 (Version 1)
Quarter: 2017Q3

REPORT INFORMATION
  Report Type: Spontaneous
  Country: US (occurrence: US)
  Receive Date: 20170728
  Receipt Date: 20170728
  Transmission Date: 20171127
  Serious: Yes (Life-Threatening, Other)
  Sender: FDA-Public Use
  Company Number: None

PATIENT
  Age: 40 Year
  Sex: Male
  Weight: 85.5 kg

DRUGS (8)
  1. PROAIR HFA [Concomitant]
     Active Substance: ALBUTEROL SULFATE
  2. ZOFRAN [Concomitant]
     Active Substance: ONDANSETRON HYDROCHLORIDE
  3. ADVAIR HFA [Concomitant]
     Active Substance: FLUTICASONE PROPIONATE\SALMETEROL XINAFOATE
  4. HYDROCODONE [Concomitant]
     Active Substance: HYDROCODONE
  5. DULOXETINE. [Suspect]
     Active Substance: DULOXETINE
     Indication: POST-TRAUMATIC STRESS DISORDER
     Route: 048
     Dates: start: 20140101, end: 20170719
  6. PROTONIX [Concomitant]
     Active Substance: PANTOPRAZOLE SODIUM
  7. LITHIUM. [Concomitant]
     Active Substance: LITHIUM
  8. IBUPROFEN. [Concomitant]
     Active Substance: IBUPROFEN

REACTIONS (15)
  - Withdrawal syndrome [None]
  - Migraine [None]
  - Vomiting [None]
  - Tremor [None]
  - Diarrhoea [None]
  - Hallucination [None]
  - Hyperhidrosis [None]
  - Pain [None]
  - Confusional state [None]
  - Anxiety [None]
  - Vertigo [None]
  - Suicidal ideation [None]
  - Nausea [None]
  - Mood swings [None]
  - Head discomfort [None]

NARRATIVE: CASE EVENT DATE: 20170728
